FAERS Safety Report 4686343-5 (Version None)
Quarter: 2005Q2

REPORT INFORMATION
  Report Type: 
  Country: None (occurrence: None)
  Receive Date: 20050609
  Receipt Date: 20050530
  Transmission Date: 20051028
  Serious: Yes (Other)
  Sender: FDA-Public Use
  Company Number: SE-JNJFOC-20050507289

PATIENT
  Age: 55 Year
  Sex: Female

DRUGS (2)
  1. REMICADE [Suspect]
     Indication: RHEUMATOID ARTHRITIS
  2. ACETAMINOPHEN [Concomitant]
     Route: 049

REACTIONS (6)
  - ARRHYTHMIA [None]
  - CHEST DISCOMFORT [None]
  - CONJUNCTIVITIS [None]
  - FACIAL PALSY [None]
  - FATIGUE [None]
  - PYREXIA [None]
